FAERS Safety Report 7533741-8 (Version None)
Quarter: 2011Q2

REPORT INFORMATION
  Report Type: 
  Country: None (occurrence: None)
  Receive Date: 20110608
  Receipt Date: 20060418
  Transmission Date: 20111010
  Serious: Yes (Hospitalization)
  Sender: FDA-Public Use
  Company Number: PHFR2006GB01189

PATIENT
  Sex: Female

DRUGS (2)
  1. CLOZAPINE [Suspect]
     Indication: SCHIZOPHRENIA
     Dosage: 225 MG, QD
     Route: 048
     Dates: start: 20060302, end: 20060316
  2. OLANZAPINE [Concomitant]
     Indication: SCHIZOPHRENIA
     Dosage: 20 MG, QD
     Route: 048
     Dates: start: 20051001

REACTIONS (4)
  - VIRAL INFECTION [None]
  - TACHYCARDIA [None]
  - BODY TEMPERATURE INCREASED [None]
  - MALAISE [None]
